FAERS Safety Report 6242577-X (Version None)
Quarter: 2009Q2

REPORT INFORMATION
  Report Type: 
  Country: None (occurrence: None)
  Receive Date: 20090624
  Receipt Date: 20090615
  Transmission Date: 20091009
  Serious: Yes (Hospitalization)
  Sender: FDA-Public Use
  Company Number: US-EISAI INC.-E7272-00027-SPO-US

PATIENT
  Age: 59 Year
  Sex: Female

DRUGS (1)
  1. ONTAK [Suspect]
     Indication: T-CELL LYMPHOMA
     Dosage: UNKNOWN
     Route: 042

REACTIONS (1)
  - POLYNEUROPATHY [None]
